FAERS Safety Report 25878999 (Version 1)
Quarter: 2025Q4

REPORT INFORMATION
  Report Type: Spontaneous
  Country: US (occurrence: US)
  Receive Date: 20251003
  Receipt Date: 20251003
  Transmission Date: 20260118
  Serious: No
  Sender: PFIZER
  Company Number: US-PFIZER INC-202500174621

PATIENT
  Age: 64 Year
  Sex: Female

DRUGS (4)
  1. TUKYSA [Suspect]
     Active Substance: TUCATINIB
     Indication: Breast cancer female
     Dosage: UNK
     Dates: start: 20240411, end: 20240412
  2. TUKYSA [Suspect]
     Active Substance: TUCATINIB
     Dosage: 300 MG, 2X/DAY (TWO 150MG TABLETS ORALLY, TWICE DAILY)
     Route: 048
  3. TRAZIMERA [Concomitant]
     Active Substance: TRASTUZUMAB-QYYP
     Indication: Breast cancer female
     Dosage: UNK
     Dates: start: 20240411, end: 20240412
  4. XELODA [Concomitant]
     Active Substance: CAPECITABINE
     Dosage: UNK
     Dates: start: 20240411, end: 20240412

REACTIONS (3)
  - Affective disorder [Unknown]
  - Pain [Unknown]
  - Off label use [Unknown]
